FAERS Safety Report 7461535-0 (Version None)
Quarter: 2011Q2

REPORT INFORMATION
  Report Type: 
  Country: None (occurrence: None)
  Receive Date: 20110428
  Receipt Date: 20110425
  Transmission Date: 20111010
  Serious: Yes (Hospitalization, Other)
  Sender: FDA-Public Use
  Company Number: ACO_22451_2011

PATIENT
  Age: 56 Year
  Sex: Male

DRUGS (4)
  1. AMPYRA [Suspect]
     Indication: MULTIPLE SCLEROSIS
     Dosage: 10 MG, BID, ORAL
     Route: 048
     Dates: start: 20100101
  2. COPAXONE [Concomitant]
  3. OXYBUTYNIN [Concomitant]
  4. DDAVP (00361901) (DESMPOPRESSIN) [Concomitant]

REACTIONS (3)
  - CARDIAC ARREST [None]
  - ELECTROCARDIOGRAM QT PROLONGED [None]
  - ELECTROCARDIOGRAM ABNORMAL [None]
